FAERS Safety Report 18809711 (Version 3)
Quarter: 2021Q1

REPORT INFORMATION
  Report Type: Spontaneous
  Country: US (occurrence: US)
  Receive Date: 20210129
  Receipt Date: 20210311
  Transmission Date: 20210419
  Serious: No
  Sender: FDA-Public Use
  Company Number: US-CELGENEUS-USA-20210106520

PATIENT
  Age: 48 Year
  Sex: Male

DRUGS (6)
  1. FERROUS GLUCONATE [Concomitant]
     Active Substance: FERROUS GLUCONATE
     Indication: IRON DEFICIENCY
     Route: 065
  2. POMALYST [Suspect]
     Active Substance: POMALIDOMIDE
     Indication: IRON DEFICIENCY
     Dosage: 3 MILLIGRAM
     Route: 048
     Dates: start: 20210129
  3. POMALYST [Suspect]
     Active Substance: POMALIDOMIDE
     Indication: HEREDITARY HAEMORRHAGIC TELANGIECTASIA
     Dosage: 4 MILLIGRAM
     Route: 048
     Dates: start: 202011
  4. POMALYST [Suspect]
     Active Substance: POMALIDOMIDE
     Indication: OFF LABEL USE
     Dosage: 4 MILLIGRAM
     Route: 048
     Dates: start: 20201031
  5. POMALYST [Suspect]
     Active Substance: POMALIDOMIDE
     Indication: EPISTAXIS
  6. AMICAR [Concomitant]
     Active Substance: AMINOCAPROIC ACID
     Indication: EPISTAXIS
     Route: 065

REACTIONS (2)
  - Constipation [Recovered/Resolved]
  - Abdominal distension [Recovering/Resolving]

NARRATIVE: CASE EVENT DATE: 20201114
